FAERS Safety Report 8155217-X (Version None)
Quarter: 2012Q1

REPORT INFORMATION
  Report Type: 
  Country: None (occurrence: None)
  Receive Date: 20120222
  Receipt Date: 20120214
  Transmission Date: 20120608
  Serious: Yes (Hospitalization)
  Sender: FDA-Public Use
  Company Number: US-BIOGENIDEC-2012BI003852

PATIENT
  Age: 48 Year
  Sex: Female

DRUGS (8)
  1. ZANAFLEX [Concomitant]
  2. AMPYRA [Concomitant]
  3. TRAMADOL HCL [Concomitant]
  4. BACLOFEN [Concomitant]
  5. TYSABRI [Suspect]
     Indication: MULTIPLE SCLEROSIS
     Route: 042
     Dates: start: 20070202
  6. EFFEXOR [Concomitant]
  7. NEURONTIN [Concomitant]
  8. ADDERALL 5 [Concomitant]

REACTIONS (1)
  - CARDIAC FAILURE CONGESTIVE [None]
